FAERS Safety Report 9748266 (Version 3)
Quarter: 2014Q1

REPORT INFORMATION
  Report Type: Spontaneous
  Country: US (occurrence: None)
  Receive Date: 20131206
  Receipt Date: 20140224
  Transmission Date: 20141002
  Serious: Yes (Other)
  Sender: FDA-Public Use
  Company Number: ADR-2013-02082

PATIENT
  Sex: Female

DRUGS (1)
  1. LIORESAL [Suspect]
     Indication: MUSCLE SPASTICITY

REACTIONS (15)
  - Drug withdrawal syndrome [None]
  - Device failure [None]
  - Catheter site extravasation [None]
  - Overdose [None]
  - Tachycardia [None]
  - Hyperhidrosis [None]
  - Trismus [None]
  - Muscle spasticity [None]
  - Implant site extravasation [None]
  - Abdominal pain [None]
  - Vomiting [None]
  - Decreased appetite [None]
  - Kyphosis [None]
  - Device kink [None]
  - Device dislocation [None]
